FAERS Safety Report 22112271 (Version 2)
Quarter: 2023Q2

REPORT INFORMATION
  Report Type: Spontaneous
  Country: US (occurrence: US)
  Receive Date: 20230318
  Receipt Date: 20230421
  Transmission Date: 20230722
  Serious: No
  Sender: FDA-Public Use
  Company Number: US-BRISTOL-MYERS SQUIBB COMPANY-2023-039648

PATIENT
  Age: 57 Year
  Sex: Female
  Weight: 57.61 kg

DRUGS (3)
  1. OPDIVO [Suspect]
     Active Substance: NIVOLUMAB
     Indication: Pancreatic carcinoma
     Dosage: FREQ:  EVERY 21 DAYS
     Route: 042
  2. OPDIVO [Suspect]
     Active Substance: NIVOLUMAB
     Dates: start: 20230410
  3. YERVOY [Suspect]
     Active Substance: IPILIMUMAB
     Indication: Pancreatic carcinoma
     Dosage: FREQ:  EVERY 21 DAYS
     Route: 042

REACTIONS (1)
  - Off label use [Unknown]
